FAERS Safety Report 4654311-5 (Version None)
Quarter: 2005Q2

REPORT INFORMATION
  Report Type: 
  Country: None (occurrence: None)
  Receive Date: 20050404
  Receipt Date: 20041112
  Transmission Date: 20051028
  Serious: No
  Sender: FDA-Public Use
  Company Number: USA041082689

PATIENT
  Age: 51 Year
  Sex: Female

DRUGS (3)
  1. CYMBALTA (DULOEXTINE HYDROCHLORIDE) [Suspect]
  2. ACETAMINOPHEN AND OXYCODONE HCL [Concomitant]
  3. LAMICTAL [Concomitant]

REACTIONS (1)
  - AKATHISIA [None]
